FAERS Safety Report 5483254-2 (Version None)
Quarter: 2007Q4

REPORT INFORMATION
  Report Type: 
  Country: None (occurrence: None)
  Receive Date: 20071009
  Receipt Date: 20070921
  Transmission Date: 20080405
  Serious: Yes (Life-Threatening, Hospitalization)
  Sender: FDA-Public Use
  Company Number: DSA_30672_2007

PATIENT
  Age: 48 Year
  Sex: Female

DRUGS (2)
  1. TAVOR /00273201/ (TAVOR - LORAZEPAM) 1 DF [Suspect]
     Dosage: 14 DF 1X ORAL
     Route: 048
     Dates: start: 20070918, end: 20070918
  2. CITALOPRAM (CITALOPRAM) 30 MG [Suspect]
     Dosage: 90 MG 1X ORAL
     Route: 048
     Dates: start: 20070918, end: 20070918

REACTIONS (5)
  - CONFUSIONAL STATE [None]
  - HYPERTENSION [None]
  - MULTIPLE DRUG OVERDOSE [None]
  - MYDRIASIS [None]
  - SUICIDE ATTEMPT [None]
